FAERS Safety Report 13084098 (Version 1)
Quarter: 2017Q1

REPORT INFORMATION
  Report Type: Spontaneous
  Country: DE (occurrence: DE)
  Receive Date: 20170104
  Receipt Date: 20170104
  Transmission Date: 20170428
  Serious: Yes (Congenital Anomaly)
  Sender: FDA-Public Use
  Company Number: DE-SUN PHARMACEUTICAL INDUSTRIES LTD-2016RR-130250

PATIENT
  Age: 1 Day
  Sex: Female
  Weight: 3.54 kg

DRUGS (2)
  1. VENLAFAXINE [Suspect]
     Active Substance: VENLAFAXINE HYDROCHLORIDE
     Indication: GENERALISED ANXIETY DISORDER
     Dosage: 37.5 MG, DAILY, 0-39.6 GESTATIONAL WEEK
     Route: 064
     Dates: start: 20151027, end: 20160801
  2. FOLIO FORTE [Concomitant]
     Active Substance: FOLIC ACID\VITAMINS
     Indication: PROPHYLAXIS OF NEURAL TUBE DEFECT
     Dosage: 0.8 MG, DAILY, 0-7.2 GESTATIONAL WEEK
     Route: 064
     Dates: start: 20151027, end: 20151217

REACTIONS (2)
  - Atrial septal defect [Recovering/Resolving]
  - Ventricular septal defect [Recovered/Resolved]

NARRATIVE: CASE EVENT DATE: 20160801
